FAERS Safety Report 5726898-2 (Version None)
Quarter: 2008Q2

REPORT INFORMATION
  Report Type: 
  Country: None (occurrence: None)
  Receive Date: 20080502
  Receipt Date: 20080422
  Transmission Date: 20081010
  Serious: Yes (Hospitalization, Other)
  Sender: FDA-Public Use
  Company Number: FR-PFIZER INC-2008036620

PATIENT
  Sex: Female
  Weight: 128 kg

DRUGS (6)
  1. AROMASIN [Suspect]
     Indication: BREAST CANCER
     Route: 048
  2. CORDARONE [Concomitant]
     Route: 048
  3. HYPERIUM [Concomitant]
     Route: 048
     Dates: start: 20001201
  4. LASILIX [Concomitant]
     Route: 048
     Dates: start: 19980101
  5. SPIRONOLACTONE [Concomitant]
     Route: 048
     Dates: start: 20040815
  6. ATORVASTATIN CALCIUM [Concomitant]
     Route: 048
     Dates: start: 20080201

REACTIONS (1)
  - PULMONARY EMBOLISM [None]
